FAERS Safety Report 22296243 (Version 2)
Quarter: 2023Q2

REPORT INFORMATION
  Report Type: Report from Study
  Country: CA (occurrence: CA)
  Receive Date: 20230508
  Receipt Date: 20230612
  Transmission Date: 20230722
  Serious: Yes (Death, Hospitalization, Other)
  Sender: FDA-Public Use
  Company Number: CA-HLS-202301009

PATIENT
  Age: 65 Year
  Sex: Male

DRUGS (13)
  1. CLOZARIL [Suspect]
     Active Substance: CLOZAPINE
     Indication: Product used for unknown indication
     Dosage: 09-SEP-2011: 50MG TABLET; FROM 10-APR-2015: 100MG TABLET; 1/2 TABLET MORNING AND BEDTIME, ONE COMPLE
     Route: 048
     Dates: start: 19960324, end: 202301
  2. LORAZEPAM [Concomitant]
     Active Substance: LORAZEPAM
     Indication: Anxiety
     Dosage: 0.5MG SUBLINGUAL TABLET (1-2 DAILY PRN);  CHANGED TO 0.5-1 MG SUBCUTANEOUS Q4H PRN JAN-2023.
     Route: 065
     Dates: start: 20220818
  3. DEXAMETHASONE [Concomitant]
     Active Substance: DEXAMETHASONE
     Indication: Product used for unknown indication
     Dosage: 4MG PO BID (8MG) X3 DAYS, INCREASED TO 16MGX4 DAYS, DECREASED TO 4MG BIG (TOTAL 8MG IN 24 HOURS)
     Route: 065
  4. HYDROMORPHONE [Concomitant]
     Active Substance: HYDROMORPHONE
     Indication: Product used for unknown indication
     Dosage: 0.25 MG SUBCUTANEOUS Q30 MINUTES PRN
     Route: 065
  5. HALDOL [Concomitant]
     Active Substance: HALOPERIDOL
     Indication: Agitation
     Dosage: 0.5 MG SUBCUTANEOUS Q4H, PRN AND 0.5-1 MG SUBCUTANEOUS Q1H, PRN
     Route: 065
  6. HALDOL [Concomitant]
     Active Substance: HALOPERIDOL
     Indication: Hallucination
     Dosage: 0.5 MG SUBCUTANEOUS Q4H, PRN AND 0.5-1 MG SUBCUTANEOUS Q1H, PRN
     Route: 065
  7. GLYCOPYRROLATE [Concomitant]
     Active Substance: GLYCOPYRROLATE
     Indication: Product used for unknown indication
     Dosage: 0.4 MG SUBCUTANEOUS Q4H, PRN
     Route: 065
  8. ACETAMINOPHEN [Concomitant]
     Active Substance: ACETAMINOPHEN
     Indication: Product used for unknown indication
     Dosage: 650 MG SUPPOSITORY OR PO, Q4H, PRN
     Route: 065
  9. NICOTINE TRANSDERMAL SYSTEM [Concomitant]
     Active Substance: NICOTINE
     Indication: Product used for unknown indication
     Dosage: 21 MG/DAY PATCH
     Route: 065
  10. FAMOTIDINE [Concomitant]
     Active Substance: FAMOTIDINE
     Indication: Product used for unknown indication
     Dosage: 20 MG SUBCUTANEOUS DAILY
     Route: 065
  11. ONDANSETRON [Concomitant]
     Active Substance: ONDANSETRON
     Indication: Product used for unknown indication
     Dosage: 8 MG PO Q8H PRN
     Route: 065
  12. MELATONIN [Concomitant]
     Active Substance: MELATONIN
     Indication: Insomnia
     Dosage: 3 MG PO/SUBLINGUAL NIGHTLY PRN FOR INSOMNIA
     Route: 065
  13. AMOXICILLIN\CLAVULANIC ACID [Concomitant]
     Active Substance: AMOXICILLIN\CLAVULANIC ACID
     Indication: Product used for unknown indication
     Dosage: AMOXICILLIN TRIHYDRATE 875 MG, POTASSIUM CLAVULANATE 125 MG TABLET; 1 TABLET BIDX5 DAYS
     Route: 048
     Dates: start: 20211223, end: 20211227

REACTIONS (10)
  - Acute kidney injury [Unknown]
  - Cachexia [Unknown]
  - Delirium [Unknown]
  - Metastasis [Fatal]
  - Depressed level of consciousness [Unknown]
  - Eastern Cooperative Oncology Group performance status worsened [Unknown]
  - Neutrophilia [Unknown]
  - Anxiety [Unknown]
  - Anal incontinence [Unknown]
  - Weight decreased [Unknown]

NARRATIVE: CASE EVENT DATE: 20221201
